FAERS Safety Report 19603182 (Version 1)
Quarter: 2021Q3

REPORT INFORMATION
  Report Type: Spontaneous
  Country: IN (occurrence: IN)
  Receive Date: 20210723
  Receipt Date: 20210723
  Transmission Date: 20211014
  Serious: Yes (Other)
  Sender: FDA-Public Use
  Company Number: IN-JUBILANT CADISTA PHARMACEUTICALS-2021JUB00217

PATIENT
  Age: 48 Year
  Sex: Male

DRUGS (3)
  1. CARBAMAZEPINE. [Suspect]
     Active Substance: CARBAMAZEPINE
     Indication: BIPOLAR DISORDER
     Dosage: 600 MG, 1X/DAY, STARTED IN 2015
     Route: 065
     Dates: start: 2015
  2. QUETIAPINE. [Concomitant]
     Active Substance: QUETIAPINE
     Dosage: INCREASED DOSE
     Route: 065
  3. QUETIAPINE. [Concomitant]
     Active Substance: QUETIAPINE
     Indication: BIPOLAR DISORDER
     Dosage: 600 MG, 1X/DAY
     Route: 065

REACTIONS (3)
  - Myelosuppression [Recovered/Resolved]
  - Agranulocytosis [Recovered/Resolved]
  - Histiocytic necrotising lymphadenitis [Recovered/Resolved]

NARRATIVE: CASE EVENT DATE: 201806
